FAERS Safety Report 8599479-3 (Version None)
Quarter: 2012Q3

REPORT INFORMATION
  Report Type: 
  Country: None (occurrence: None)
  Receive Date: 20120816
  Receipt Date: 20120807
  Transmission Date: 20120928
  Serious: Yes (Hospitalization)
  Sender: FDA-Public Use
  Company Number: JP-ABBOTT-12P-087-0967147-00

PATIENT
  Sex: Male

DRUGS (4)
  1. PROTECADIN [Suspect]
     Indication: EPILEPSY
     Dosage: UNKNOWN; ONCE
     Route: 048
  2. DEPAKENE [Suspect]
     Indication: EPILEPSY
     Dosage: UNKNOWN; ONCE
     Route: 048
  3. CLOBAZAM [Suspect]
     Indication: SUICIDAL IDEATION
  4. CLOBAZAM [Suspect]
     Indication: EPILEPSY
     Dosage: 30 DOSAGE FORM, ONCE
     Route: 048

REACTIONS (2)
  - OVERDOSE [None]
  - DEPRESSED LEVEL OF CONSCIOUSNESS [None]
